FAERS Safety Report 9242665 (Version 2)
Quarter: 2013Q2

REPORT INFORMATION
  Report Type: Spontaneous
  Country: CN (occurrence: CN)
  Receive Date: 20130419
  Receipt Date: 20130515
  Transmission Date: 20140414
  Serious: Yes (Other)
  Sender: FDA-Public Use
  Company Number: CN-GLAXOSMITHKLINE-B0884120A

PATIENT
  Sex: Female

DRUGS (2)
  1. SERETIDE [Suspect]
     Indication: EMPHYSEMA
     Dosage: 1PUFF TWICE PER DAY
     Route: 055
     Dates: start: 20130406
  2. CHINESE HERBAL MEDICINE [Concomitant]
     Indication: EMPHYSEMA
     Route: 048
     Dates: start: 20130406

REACTIONS (4)
  - Osteonecrosis [Unknown]
  - Arthralgia [Recovering/Resolving]
  - Osteoporosis [Unknown]
  - Respiratory tract congestion [Not Recovered/Not Resolved]
